FAERS Safety Report 21648883 (Version 1)
Quarter: 2022Q4

REPORT INFORMATION
  Report Type: Spontaneous
  Country: US (occurrence: US)
  Receive Date: 20221128
  Receipt Date: 20221128
  Transmission Date: 20230113
  Serious: Yes (Hospitalization, Other)
  Sender: FDA-Public Use
  Company Number: US-CIPLA LTD.-2022US06850

PATIENT
  Age: 45 Year
  Sex: Female

DRUGS (2)
  1. CITALOPRAM [Suspect]
     Active Substance: CITALOPRAM HYDROBROMIDE
     Dosage: UNK, UNDISCLOSED AMOUNTS
     Route: 048
  2. QUININE [Suspect]
     Active Substance: QUININE
     Dosage: UNK
     Route: 048

REACTIONS (5)
  - Electrocardiogram QRS complex prolonged [Unknown]
  - Intentional product use issue [Unknown]
  - Electrocardiogram QT prolonged [Unknown]
  - Hypotension [Unknown]
  - Seizure [Unknown]
